FAERS Safety Report 8007733-9 (Version None)
Quarter: 2011Q4

REPORT INFORMATION
  Report Type: 
  Country: None (occurrence: None)
  Receive Date: 20111227
  Receipt Date: 20110311
  Transmission Date: 20120403
  Serious: No
  Sender: FDA-Public Use
  Company Number: US-ABBOTT-11P-163-0711608-00

PATIENT
  Age: 75 Year
  Sex: Male
  Weight: 93.978 kg

DRUGS (5)
  1. LUPRON DEPOT [Suspect]
     Indication: PROSTATE CANCER
     Dates: start: 20100601
  2. UNKNOWN MEDICATION [Concomitant]
     Indication: ATRIAL FIBRILLATION
  3. CASODEX [Concomitant]
     Indication: PROSTATE CANCER
  4. UNKNOWN MEDICATION [Concomitant]
     Indication: HYPERTENSION
  5. UNKNOWN MEDICATION [Concomitant]
     Indication: BLOOD CHOLESTEROL INCREASED

REACTIONS (4)
  - MUSCLE DISORDER [None]
  - WEIGHT INCREASED [None]
  - ASTHENIA [None]
  - FATIGUE [None]
